FAERS Safety Report 9100895 (Version 1)
Quarter: 2013Q1

REPORT INFORMATION
  Report Type: Spontaneous
  Country: US (occurrence: None)
  Receive Date: 20130220
  Receipt Date: 20130220
  Transmission Date: 20140127
  Serious: Yes (Life-Threatening, Hospitalization)
  Sender: FDA-Public Use
  Company Number: None

PATIENT
  Age: 74 Year
  Sex: Male
  Weight: 191.5 kg

DRUGS (1)
  1. MINOXIDIL [Suspect]
     Indication: HYPERTENSION
     Route: 048
     Dates: start: 20120605, end: 20130217

REACTIONS (5)
  - Pericardial effusion [None]
  - Atrial fibrillation [None]
  - Pulmonary embolism [None]
  - Bronchitis [None]
  - International normalised ratio decreased [None]
